FAERS Safety Report 4749816-2 (Version None)
Quarter: 2005Q3

REPORT INFORMATION
  Report Type: 
  Country: None (occurrence: None)
  Receive Date: 20050822
  Receipt Date: 20050816
  Transmission Date: 20060218
  Serious: Yes (Other)
  Sender: FDA-Public Use
  Company Number: US-JNJFOC-20050606412

PATIENT
  Sex: Male

DRUGS (2)
  1. LEVAQUIN [Suspect]
     Indication: POSTOPERATIVE INFECTION
  2. WELLBUTRIN XL [Interacting]
     Indication: DEPRESSION

REACTIONS (3)
  - CONVULSION [None]
  - DRUG INTERACTION [None]
  - GRAND MAL CONVULSION [None]
